FAERS Safety Report 22064445 (Version 1)
Quarter: 2023Q1

REPORT INFORMATION
  Report Type: Spontaneous
  Country: US (occurrence: None)
  Receive Date: 20230303
  Receipt Date: 20230303
  Transmission Date: 20230417
  Serious: Yes (Hospitalization)
  Sender: FDA-Public Use
  Company Number: None

PATIENT
  Age: 69 Year
  Sex: Male
  Weight: 120.6 kg

DRUGS (18)
  1. DIOVAN [Suspect]
     Active Substance: VALSARTAN
     Indication: Cardiac discomfort
     Route: 048
     Dates: start: 20230204, end: 20230218
  2. LASIX [Concomitant]
     Active Substance: FUROSEMIDE
  3. SIMVASTATIN [Concomitant]
     Active Substance: SIMVASTATIN
  4. JARDIANCE [Concomitant]
     Active Substance: EMPAGLIFLOZIN
  5. GABAPENTIN [Concomitant]
     Active Substance: GABAPENTIN
  6. CHANTIX [Concomitant]
     Active Substance: VARENICLINE TARTRATE
  7. DOXAZOSIN [Concomitant]
     Active Substance: DOXAZOSIN MESYLATE
  8. METFORMIN [Concomitant]
     Active Substance: METFORMIN HYDROCHLORIDE
  9. PANTOPRAZOLE [Concomitant]
     Active Substance: PANTOPRAZOLE
  10. FLEXERIL [Concomitant]
     Active Substance: CYCLOBENZAPRINE HYDROCHLORIDE
  11. ZOLPIDEM TARTRATE [Concomitant]
     Active Substance: ZOLPIDEM TARTRATE
  12. HYDROCODONE [Concomitant]
     Active Substance: HYDROCODONE
  13. ASPIRIN [Concomitant]
     Active Substance: ASPIRIN
  14. HUMALOG [Concomitant]
     Active Substance: INSULIN LISPRO
  15. TRESIBA [Concomitant]
     Active Substance: INSULIN DEGLUDEC
  16. FISH OIL [Concomitant]
     Active Substance: FISH OIL
  17. VITAMIN D [Concomitant]
     Active Substance: VITAMIN D NOS
  18. PROBIOTICS NOS [Concomitant]
     Active Substance: PROBIOTICS NOS

REACTIONS (7)
  - Middle insomnia [None]
  - Syncope [None]
  - Fall [None]
  - Limb injury [None]
  - Dizziness [None]
  - Joint dislocation [None]
  - Product administration interrupted [None]

NARRATIVE: CASE EVENT DATE: 20230217
